FAERS Safety Report 13486348 (Version 1)
Quarter: 2017Q2

REPORT INFORMATION
  Report Type: Not Available
  Country: US (occurrence: US)
  Receive Date: 20170426
  Receipt Date: 20170426
  Transmission Date: 20170830
  Serious: No
  Sender: FDA-Public Use
  Company Number: US-ECOLAB-2016-US-007834

PATIENT
  Age: 47 Year
  Sex: Female

DRUGS (1)
  1. SCRUB-STAT [Suspect]
     Active Substance: CHLORHEXIDINE GLUCONATE
     Dates: start: 20161003

REACTIONS (4)
  - Ocular hyperaemia [Not Recovered/Not Resolved]
  - Genital discomfort [Not Recovered/Not Resolved]
  - Accidental exposure to product [Unknown]
  - Eye irritation [Recovered/Resolved]

NARRATIVE: CASE EVENT DATE: 20161003
